FAERS Safety Report 10558592 (Version 4)
Quarter: 2014Q4

REPORT INFORMATION
  Report Type: Spontaneous
  Country: DK (occurrence: DK)
  Receive Date: 20141031
  Receipt Date: 20141203
  Transmission Date: 20150529
  Serious: Yes (Death, Life-Threatening, Other)
  Sender: FDA-Public Use
  Company Number: DK-ABBVIE-13P-044-1146728-00

PATIENT
  Age: 42 Year
  Sex: Female

DRUGS (35)
  1. STESOLID [Concomitant]
     Active Substance: DIAZEPAM
     Indication: RESTLESSNESS
     Dates: start: 20140503, end: 20140527
  2. METHOTREXATE [Concomitant]
     Active Substance: METHOTREXATE
     Indication: ANKYLOSING SPONDYLITIS
     Dates: start: 2013
  3. SIMPONI [Concomitant]
     Active Substance: GOLIMUMAB
     Indication: ANKYLOSING SPONDYLITIS
     Dates: start: 20140106, end: 20140809
  4. FURIX [Concomitant]
     Active Substance: FUROSEMIDE
     Indication: DIURETIC THERAPY
     Dates: start: 20130704, end: 20140809
  5. MALFIN [Concomitant]
     Indication: PAIN
     Dates: start: 20140510, end: 20140512
  6. MORFIN [Concomitant]
     Active Substance: MORPHINE SULFATE
     Indication: PAIN
     Dates: start: 20140526
  7. OXAPAX [Concomitant]
     Active Substance: OXAZEPAM
     Indication: RESTLESSNESS
     Dates: start: 20140508, end: 20140809
  8. RIVOTRIL [Concomitant]
     Active Substance: CLONAZEPAM
     Indication: EPILEPSY
     Dates: start: 20140505, end: 20140809
  9. ETANERCEPT [Concomitant]
     Active Substance: ETANERCEPT
     Indication: ANKYLOSING SPONDYLITIS
     Dates: start: 2013
  10. METHOTREXATE (METHOTREXATE SODIUM) [Concomitant]
     Active Substance: METHOTREXATE SODIUM
     Indication: RHEUMATOID ARTHRITIS
     Dates: start: 20140423, end: 20140509
  11. RIMACTAN [Concomitant]
     Active Substance: RIFAMPIN
     Indication: SKIN DISORDER
     Dates: start: 20140514, end: 20140809
  12. ENBREL [Concomitant]
     Active Substance: ETANERCEPT
     Indication: ANKYLOSING SPONDYLITIS
     Dates: start: 20130225, end: 20131230
  13. MAXIDEX [Concomitant]
     Active Substance: DEXAMETHASONE
     Indication: IRITIS
     Dates: start: 20131230
  14. PANTOPRAZOLE [Concomitant]
     Active Substance: PANTOPRAZOLE SODIUM
     Indication: GASTRIC ULCER
     Dates: start: 20140503
  15. HUMIRA [Suspect]
     Active Substance: ADALIMUMAB
     Indication: ANKYLOSING SPONDYLITIS
  16. LAXOBERAL [Concomitant]
     Active Substance: SODIUM PICOSULFATE
     Indication: CONSTIPATION
     Dates: start: 20140511, end: 20140809
  17. LEVETIRACETAM. [Concomitant]
     Active Substance: LEVETIRACETAM
     Indication: EPILEPSY
     Dates: start: 20140512, end: 20140809
  18. FLUCONAZOLE. [Concomitant]
     Active Substance: FLUCONAZOLE
     Indication: FUNGAL INFECTION
     Dates: start: 20140521, end: 20140602
  19. PINEX [Concomitant]
     Active Substance: ACETAMINOPHEN
     Indication: PAIN
     Dates: start: 20131230, end: 20140809
  20. PRIMPERAN [Concomitant]
     Active Substance: METOCLOPRAMIDE HYDROCHLORIDE
     Indication: NAUSEA
     Dates: start: 20140502, end: 20140810
  21. REMICADE [Suspect]
     Active Substance: INFLIXIMAB
     Indication: ANKYLOSING SPONDYLITIS
     Route: 065
     Dates: start: 20120319, end: 20121121
  22. MAGNESIUM HYDROXIDE. [Concomitant]
     Active Substance: MAGNESIUM HYDROXIDE
     Indication: CONSTIPATION
     Dates: start: 20140506, end: 20140809
  23. RESORCINOL [Concomitant]
     Active Substance: RESORCINOL
     Indication: SKIN DISORDER
     Dates: start: 20140514
  24. HUMIRA [Suspect]
     Active Substance: ADALIMUMAB
     Indication: ANKYLOSING SPONDYLITIS
     Route: 058
     Dates: start: 20121121, end: 20130108
  25. HUMIRA [Suspect]
     Active Substance: ADALIMUMAB
     Indication: OFF LABEL USE
  26. REMICADE [Suspect]
     Active Substance: INFLIXIMAB
     Indication: ANKYLOSING SPONDYLITIS
  27. DOLOL RETARD UNO [Concomitant]
     Active Substance: TRAMADOL
     Indication: PAIN
     Dates: start: 20131230, end: 20140602
  28. KETOCONAZOLE SHAMPOO ACTAVIS 2 % [Concomitant]
     Indication: DANDRUFF
     Dates: start: 20130122, end: 20140602
  29. LACTULOSE. [Concomitant]
     Active Substance: LACTULOSE
     Indication: CONSTIPATION
     Dates: start: 20140511, end: 20140809
  30. SOLU-MEDROL [Concomitant]
     Active Substance: METHYLPREDNISOLONE SODIUM SUCCINATE
     Indication: ADRENOCORTICAL STEROID THERAPY
     Dates: start: 20140503, end: 20140517
  31. HUMIRA [Suspect]
     Active Substance: ADALIMUMAB
     Indication: HIDRADENITIS
  32. DALACIN [Concomitant]
     Active Substance: CLINDAMYCIN\CLINDAMYCIN PHOSPHATE
     Indication: SOFT TISSUE INFECTION
     Dates: start: 20130326, end: 20140602
  33. DOLOL [Concomitant]
     Active Substance: TRAMADOL
     Indication: PAIN
     Dates: start: 20131230, end: 20140602
  34. ONDANSETRON [Concomitant]
     Active Substance: ONDANSETRON
     Indication: NAUSEA
     Dates: start: 20140502
  35. PREDNISOLONE. [Concomitant]
     Active Substance: PREDNISOLONE
     Indication: ADRENOCORTICAL STEROID THERAPY
     Dates: start: 20140501, end: 20140809

REACTIONS (24)
  - Metastases to lymph nodes [Fatal]
  - Hyperhidrosis [Unknown]
  - Procedural pain [Unknown]
  - Pain in extremity [Unknown]
  - Metastases to central nervous system [Fatal]
  - Metastases to bone [Fatal]
  - Groin pain [Unknown]
  - Pain in jaw [Unknown]
  - Hidradenitis [Unknown]
  - Metastases to lung [Fatal]
  - Psoriasis [Recovered/Resolved]
  - Drug effect decreased [Unknown]
  - Metastatic malignant melanoma [Fatal]
  - Spindle cell sarcoma [Fatal]
  - Off label use [Unknown]
  - Pustular psoriasis [Recovered/Resolved]
  - Metastases to adrenals [Fatal]
  - Condition aggravated [Unknown]
  - Mobility decreased [Unknown]
  - Brain mass [Unknown]
  - Muscle fatigue [Unknown]
  - Rash pustular [Unknown]
  - Paraesthesia [Unknown]
  - Iritis [Unknown]

NARRATIVE: CASE EVENT DATE: 2012
